FAERS Safety Report 13985219 (Version 1)
Quarter: 2017Q3

REPORT INFORMATION
  Report Type: Spontaneous
  Country: US (occurrence: None)
  Receive Date: 20170918
  Receipt Date: 20170918
  Transmission Date: 20171128
  Serious: Yes (Hospitalization)
  Sender: FDA-Public Use
  Company Number: None

PATIENT
  Age: 43 Year
  Sex: Female

DRUGS (11)
  1. LEVOTHYROXINE. [Concomitant]
     Active Substance: LEVOTHYROXINE
  2. SUTENT [Suspect]
     Active Substance: SUNITINIB MALATE
     Indication: RENAL CANCER
     Route: 048
     Dates: start: 20170803
  3. ONDANSETRON [Concomitant]
     Active Substance: ONDANSETRON
  4. AMOXICILLIN. [Concomitant]
     Active Substance: AMOXICILLIN
  5. DESMOPRESSIN [Concomitant]
     Active Substance: DESMOPRESSIN
  6. NACL [Concomitant]
     Active Substance: SODIUM CHLORIDE
  7. DEEP SEA SPRAY [Concomitant]
  8. TRAMADOL. [Concomitant]
     Active Substance: TRAMADOL
  9. HYDROCORTISONE. [Concomitant]
     Active Substance: HYDROCORTISONE
  10. KCL [Concomitant]
     Active Substance: POTASSIUM CHLORIDE
  11. CEFADROXIL. [Concomitant]
     Active Substance: CEFADROXIL

REACTIONS (5)
  - Fatigue [None]
  - Blood sodium decreased [None]
  - Vomiting [None]
  - Asthenia [None]
  - Yellow skin [None]

NARRATIVE: CASE EVENT DATE: 20170814
